FAERS Safety Report 15318923 (Version 1)
Quarter: 2018Q3

REPORT INFORMATION
  Report Type: Spontaneous
  Country: US (occurrence: US)
  Receive Date: 20180820
  Receipt Date: 20180820
  Transmission Date: 20181010
  Serious: No
  Sender: FDA-Public Use
  Company Number: None

PATIENT
  Sex: Female

DRUGS (1)
  1. YUVAFEM [Suspect]
     Active Substance: ESTRADIOL HEMIHYDRATE
     Indication: VULVOVAGINAL DRYNESS

REACTIONS (2)
  - Vaginal haemorrhage [None]
  - Vulvovaginal pain [None]

NARRATIVE: CASE EVENT DATE: 20180816
